FAERS Safety Report 23886106 (Version 2)
Quarter: 2024Q3

REPORT INFORMATION
  Report Type: Report from Study
  Country: DE (occurrence: DE)
  Receive Date: 20240522
  Receipt Date: 20240703
  Transmission Date: 20241017
  Serious: Yes (Hospitalization)
  Sender: ROCHE
  Company Number: DE-ROCHE-3183797

PATIENT
  Age: 37 Year
  Sex: Female

DRUGS (14)
  1. OCREVUS [Suspect]
     Active Substance: OCRELIZUMAB
     Indication: Relapsing multiple sclerosis
     Route: 042
     Dates: start: 20190110, end: 20190124
  2. OCREVUS [Suspect]
     Active Substance: OCRELIZUMAB
     Route: 042
     Dates: start: 20190718
  3. OCREVUS [Suspect]
     Active Substance: OCRELIZUMAB
     Route: 042
     Dates: start: 20190110
  4. BACLOFEN [Concomitant]
     Active Substance: BACLOFEN
     Indication: Muscle spasticity
     Route: 048
  5. COMIRNATY [Concomitant]
     Indication: COVID-19 immunisation
     Route: 030
     Dates: start: 20211217, end: 20211217
  6. COMIRNATY [Concomitant]
     Route: 030
     Dates: start: 20220117, end: 20220117
  7. PANTOZOL [Concomitant]
     Active Substance: PANTOPRAZOLE SODIUM
     Indication: Premedication
     Route: 048
     Dates: start: 20190110
  8. DIMETHINDENE MALEATE [Concomitant]
     Active Substance: DIMETHINDENE MALEATE
     Indication: Premedication
     Route: 042
     Dates: start: 20190110
  9. ACETAMINOPHEN [Concomitant]
     Active Substance: ACETAMINOPHEN
     Indication: Premedication
     Route: 048
     Dates: start: 20190110
  10. PREDNISOLONE [Concomitant]
     Active Substance: PREDNISOLONE
     Indication: Premedication
     Route: 042
     Dates: start: 20180110
  11. DALFAMPRIDINE [Concomitant]
     Active Substance: DALFAMPRIDINE
     Route: 048
  12. QUETIAPINE [Concomitant]
     Active Substance: QUETIAPINE
     Indication: Depression
     Route: 048
     Dates: start: 201802
  13. VENLAFAXINE [Concomitant]
     Active Substance: VENLAFAXINE HYDROCHLORIDE
     Indication: Depression
     Route: 048
     Dates: start: 201802
  14. TRIAMCINOLONE ACETONIDE [Concomitant]
     Active Substance: TRIAMCINOLONE ACETONIDE
     Route: 029
     Dates: start: 20190514, end: 20190520

REACTIONS (2)
  - COVID-19 [Recovered/Resolved with Sequelae]
  - Immunoglobulins decreased [Not Recovered/Not Resolved]

NARRATIVE: CASE EVENT DATE: 20190711
